APPROVED DRUG PRODUCT: NIACOR
Active Ingredient: NIACIN
Strength: 500MG
Dosage Form/Route: TABLET;ORAL
Application: A040378 | Product #001
Applicant: AVONDALE PHARMACEUTICALS LLC
Approved: May 3, 2000 | RLD: No | RS: Yes | Type: RX